FAERS Safety Report 11714370 (Version 1)
Quarter: 2015Q4

REPORT INFORMATION
  Report Type: Spontaneous
  Country: US (occurrence: None)
  Receive Date: 20151106
  Receipt Date: 20151106
  Transmission Date: 20160304
  Serious: Yes (Other)
  Sender: FDA-Public Use
  Company Number: None

PATIENT
  Age: 58 Year
  Sex: Female

DRUGS (1)
  1. MITOTANE [Suspect]
     Active Substance: MITOTANE
     Indication: ADRENOCORTICAL CARCINOMA
     Dosage: 259MG (1/2TABLET)
     Route: 048
     Dates: start: 201508, end: 201509

REACTIONS (5)
  - Haematuria [None]
  - Nausea [None]
  - Urine leukocyte esterase positive [None]
  - Dysuria [None]
  - Vomiting [None]

NARRATIVE: CASE EVENT DATE: 20150921
